FAERS Safety Report 24085408 (Version 1)
Quarter: 2024Q3

REPORT INFORMATION
  Report Type: Spontaneous
  Country: US (occurrence: US)
  Receive Date: 20240712
  Receipt Date: 20240712
  Transmission Date: 20241017
  Serious: No
  Sender: AMGEN
  Company Number: US-AMGEN-USASP2024138271

PATIENT
  Sex: Male

DRUGS (1)
  1. REPATHA [Suspect]
     Active Substance: EVOLOCUMAB
     Indication: Type IIa hyperlipidaemia
     Dosage: 140 MILLIGRAM, Q2WK (BI-WEEKLY)
     Route: 058
     Dates: start: 202107

REACTIONS (3)
  - Device difficult to use [Unknown]
  - Accidental exposure to product [Unknown]
  - Inappropriate schedule of product administration [Unknown]
